FAERS Safety Report 7247563-9 (Version None)
Quarter: 2011Q1

REPORT INFORMATION
  Report Type: 
  Country: None (occurrence: None)
  Receive Date: 20110127
  Receipt Date: 20110126
  Transmission Date: 20110831
  Serious: Yes (Death, Hospitalization)
  Sender: FDA-Public Use
  Company Number: TW-ROCHE-753804

PATIENT
  Age: 42 Year
  Sex: Female

DRUGS (1)
  1. MIRCERA [Suspect]
     Dosage: FREQUENCY: QM
     Route: 042
     Dates: start: 20100601

REACTIONS (1)
  - VASCULAR RUPTURE [None]
